FAERS Safety Report 18637431 (Version 1)
Quarter: 2020Q4

REPORT INFORMATION
  Report Type: Spontaneous
  Country: US (occurrence: US)
  Receive Date: 20201218
  Receipt Date: 20201218
  Transmission Date: 20210114
  Serious: Yes (Other)
  Sender: FDA-Public Use
  Company Number: US-ASTRAZENECA-2020SF66739

PATIENT
  Sex: Female
  Weight: 74.8 kg

DRUGS (3)
  1. MULTI-VITAMIN [Concomitant]
     Active Substance: .ALPHA.-TOCOPHEROL ACETATE, DL-\ASCORBIC ACID\CYANOCOBALAMIN\FLUORIDE ION\FOLIC ACID\NIACIN\PYRIDOXINE\RIBOFLAVIN\THIAMINE\VITAMIN A\VITAMIN D
  2. SYMBICORT [Suspect]
     Active Substance: BUDESONIDE\FORMOTEROL FUMARATE DIHYDRATE
     Indication: ASTHMA
     Dosage: 80/4.5 MCG , AS REQUIRED (SOMETIMES DAILY, SOMETIMES A FEW TIMES A MONTH, DEPENDS ON BREATHING) A...
     Route: 055
  3. VITAMIN D [Concomitant]
     Active Substance: VITAMIN D NOS

REACTIONS (9)
  - Dyspnoea [Unknown]
  - Bronchitis [Unknown]
  - Nasopharyngitis [Unknown]
  - Pneumonia [Unknown]
  - Intentional device misuse [Unknown]
  - Off label use [Unknown]
  - Wrong technique in device usage process [Unknown]
  - Hand fracture [Unknown]
  - Device defective [Unknown]
